FAERS Safety Report 14467250 (Version 2)
Quarter: 2018Q1

REPORT INFORMATION
  Report Type: Spontaneous
  Country: JP (occurrence: JP)
  Receive Date: 20180131
  Receipt Date: 20180212
  Transmission Date: 20180509
  Serious: Yes (Hospitalization)
  Sender: FDA-Public Use
  Company Number: PHHY2018JP015303

PATIENT
  Age: 89 Year
  Sex: Female

DRUGS (15)
  1. NEXIUM [Concomitant]
     Active Substance: ESOMEPRAZOLE MAGNESIUM
     Indication: PRODUCT USED FOR UNKNOWN INDICATION
     Dosage: 20 MG, QD
     Route: 048
  2. EDIROL [Concomitant]
     Active Substance: ELDECALCITOL
     Indication: PRODUCT USED FOR UNKNOWN INDICATION
     Dosage: ORA0.5 UG, QD
     Route: 048
  3. CEFTRIAXONE. [Concomitant]
     Active Substance: CEFTRIAXONE
     Indication: PRODUCT USED FOR UNKNOWN INDICATION
     Dosage: 1 G, BID
     Route: 065
     Dates: start: 20180119, end: 20180126
  4. DECADRAN [Concomitant]
     Active Substance: DEXAMETHASONE
     Indication: PRODUCT USED FOR UNKNOWN INDICATION
     Dosage: 3.3 MG, QD
     Route: 065
     Dates: start: 20180119, end: 20180121
  5. RECLAST [Suspect]
     Active Substance: ZOLEDRONIC ACID
     Indication: OSTEOPOROSIS
     Dosage: 5 MG, Q12MO
     Route: 041
     Dates: start: 20180112
  6. ISODINE [Concomitant]
     Active Substance: POVIDONE-IODINE
     Indication: PRODUCT USED FOR UNKNOWN INDICATION
     Dosage: UNK
     Route: 065
     Dates: start: 20180122
  7. ISOSORBIDE DINITRATE. [Concomitant]
     Active Substance: ISOSORBIDE DINITRATE
     Indication: PRODUCT USED FOR UNKNOWN INDICATION
     Dosage: 40 MG, QD
     Route: 062
  8. ACINON [Concomitant]
     Active Substance: NIZATIDINE
     Indication: PRODUCT USED FOR UNKNOWN INDICATION
     Dosage: 150 MG, QD
     Route: 048
     Dates: start: 20180121
  9. FAMOTIDINE. [Concomitant]
     Active Substance: FAMOTIDINE
     Indication: GASTROOESOPHAGEAL REFLUX DISEASE
     Dosage: 20 MG, BID
     Route: 065
     Dates: start: 20180127
  10. AMLODIPINE [Concomitant]
     Active Substance: AMLODIPINE BESYLATE
     Indication: PRODUCT USED FOR UNKNOWN INDICATION
     Dosage: 5 MG, QD
     Route: 048
  11. CEFOZOPRAN [Concomitant]
     Active Substance: CEFOZOPRAN
     Indication: PRODUCT USED FOR UNKNOWN INDICATION
     Dosage: 1 G, BID
     Route: 065
     Dates: start: 20180126
  12. VOLTAREN [Concomitant]
     Active Substance: DICLOFENAC SODIUM
     Indication: PRODUCT USED FOR UNKNOWN INDICATION
     Dosage: 50 MG, QD
     Route: 048
     Dates: start: 20180125
  13. MAGMITT [Concomitant]
     Active Substance: MAGNESIUM OXIDE
     Indication: PRODUCT USED FOR UNKNOWN INDICATION
     Dosage: 750 MG, QD
     Route: 048
  14. CALONAL [Concomitant]
     Active Substance: ACETAMINOPHEN
     Indication: PRODUCT USED FOR UNKNOWN INDICATION
     Route: 048
  15. LYRICA [Concomitant]
     Active Substance: PREGABALIN
     Indication: PRODUCT USED FOR UNKNOWN INDICATION
     Dosage: 150 MG, QD
     Route: 048

REACTIONS (1)
  - Osteomyelitis [Recovering/Resolving]

NARRATIVE: CASE EVENT DATE: 20180119
